FAERS Safety Report 4612549-7 (Version None)
Quarter: 2005Q1

REPORT INFORMATION
  Report Type: 
  Country: None (occurrence: None)
  Receive Date: 20050316
  Receipt Date: 20050228
  Transmission Date: 20050727
  Serious: Yes (Other)
  Sender: FDA-Public Use
  Company Number: 205676

PATIENT
  Age: 54 Year
  Sex: Female
  Weight: 57.1532 kg

DRUGS (3)
  1. AVONEX [Suspect]
     Indication: MULTIPLE SCLEROSIS
     Dosage: 30 UG;  QW; IM
     Route: 030
  2. AVONEX [Suspect]
     Indication: MULTIPLE SCLEROSIS
     Dosage: 15 UG; QW; IM
     Route: 030
     Dates: start: 20040926
  3. NOVANTRONE [Concomitant]

REACTIONS (18)
  - ATRIAL PRESSURE INCREASED [None]
  - CARDIAC FAILURE CONGESTIVE [None]
  - DIARRHOEA [None]
  - DILATATION ATRIAL [None]
  - DILATATION VENTRICULAR [None]
  - HYPOKINESIA [None]
  - INFLUENZA LIKE ILLNESS [None]
  - INJECTION SITE PAIN [None]
  - MITRAL VALVE INCOMPETENCE [None]
  - PERICARDIAL EFFUSION [None]
  - PNEUMONITIS [None]
  - PULMONARY HYPERTENSION [None]
  - PULMONARY OEDEMA [None]
  - RETCHING [None]
  - TRICUSPID VALVE INCOMPETENCE [None]
  - VASODILATATION [None]
  - VENTRICULAR DYSFUNCTION [None]
  - VENTRICULAR HYPOKINESIA [None]
